FAERS Safety Report 5956868-0 (Version None)
Quarter: 2008Q4

REPORT INFORMATION
  Report Type: 
  Country: None (occurrence: None)
  Receive Date: 20081118
  Receipt Date: 20081106
  Transmission Date: 20090506
  Serious: Yes (Life-Threatening)
  Sender: FDA-Public Use
  Company Number: JP-SANOFI-SYNTHELABO-A01200814350

PATIENT
  Age: 50 Year
  Sex: Male

DRUGS (3)
  1. FLUOROURACIL [Concomitant]
     Dosage: UNK
     Route: 042
     Dates: start: 20081023, end: 20081023
  2. LEUCOVORIN CALCIUM [Concomitant]
     Dosage: UNK
     Route: 041
     Dates: start: 20081106, end: 20081106
  3. ELPLAT [Suspect]
     Indication: LARGE INTESTINE CARCINOMA
     Route: 041
     Dates: start: 20081106, end: 20081106

REACTIONS (1)
  - CARDIAC ARREST [None]
